FAERS Safety Report 10214476 (Version 1)
Quarter: 2014Q2

REPORT INFORMATION
  Report Type: Spontaneous
  Country: FR (occurrence: FR)
  Receive Date: 20140603
  Receipt Date: 20140603
  Transmission Date: 20141212
  Serious: Yes (Other)
  Sender: FDA-Public Use
  Company Number: FR-JNJFOC-20140516730

PATIENT
  Age: 10 Year
  Sex: Male
  Weight: 37 kg

DRUGS (1)
  1. RISPERDAL [Suspect]
     Indication: DISTURBANCE IN SOCIAL BEHAVIOUR
     Dosage: 1MG/ML
     Route: 048
     Dates: start: 20140509, end: 20140509

REACTIONS (4)
  - Accidental poisoning [Recovered/Resolved]
  - Somnolence [Recovered/Resolved]
  - Fatigue [Recovered/Resolved]
  - Speech disorder [Recovered/Resolved]
